FAERS Safety Report 7005513-4 (Version None)
Quarter: 2010Q3

REPORT INFORMATION
  Report Type: 
  Country: None (occurrence: None)
  Receive Date: 20100917
  Receipt Date: 20100908
  Transmission Date: 20110219
  Serious: Yes (Other)
  Sender: FDA-Public Use
  Company Number: 2010080062

PATIENT
  Age: 36 Day

DRUGS (1)
  1. LUPRAC [Suspect]
     Dosage: 0.48 MG/KG/DAY, 1.42 MG/KG/DAY

REACTIONS (1)
  - HYPERKALAEMIA [None]
